FAERS Safety Report 17285691 (Version 1)
Quarter: 2020Q1

REPORT INFORMATION
  Report Type: Report from Study
  Country: None (occurrence: US)
  Receive Date: 20200118
  Receipt Date: 20200118
  Transmission Date: 20200409
  Serious: Yes (Other)
  Sender: FDA-Public Use
  Company Number: US-ABBVIE-20K-163-3238777-00

PATIENT
  Sex: Male

DRUGS (1)
  1. HUMIRA [Suspect]
     Active Substance: ADALIMUMAB
     Indication: PRODUCT USED FOR UNKNOWN INDICATION
     Route: 058

REACTIONS (8)
  - Monoplegia [Not Recovered/Not Resolved]
  - Nerve injury [Unknown]
  - Renal failure [Unknown]
  - Insomnia [Unknown]
  - Gastric disorder [Unknown]
  - Pain [Unknown]
  - Psoriasis [Unknown]
  - Blood urine present [Unknown]

NARRATIVE: CASE EVENT DATE: 201910
